FAERS Safety Report 10576293 (Version 3)
Quarter: 2015Q2

REPORT INFORMATION
  Report Type: Spontaneous
  Country: US (occurrence: US)
  Receive Date: 20141111
  Receipt Date: 20150617
  Transmission Date: 20150821
  Serious: Yes (Death, Hospitalization)
  Sender: FDA-Public Use
  Company Number: US-SA-2014SA151432

PATIENT
  Age: 71 Year
  Sex: Male

DRUGS (29)
  1. PLAVIX [Suspect]
     Active Substance: CLOPIDOGREL BISULFATE
     Indication: TRANSIENT ISCHAEMIC ATTACK
     Route: 065
     Dates: start: 20030202, end: 20100526
  2. HYDROCHLOROTHIAZIDE/TRIAMTERENE [Concomitant]
  3. ZOCOR [Concomitant]
     Active Substance: SIMVASTATIN
  4. AMLODIPINE [Concomitant]
     Active Substance: AMLODIPINE BESYLATE
  5. PLAVIX [Suspect]
     Active Substance: CLOPIDOGREL BISULFATE
     Indication: STENT PLACEMENT
     Route: 065
     Dates: start: 20030202, end: 20100526
  6. IPRATROPIUM [Concomitant]
     Active Substance: IPRATROPIUM
  7. LISINOPRIL. [Concomitant]
     Active Substance: LISINOPRIL
  8. ROCEPHIN [Concomitant]
     Active Substance: CEFTRIAXONE SODIUM
     Route: 042
  9. ENALAPRIL [Concomitant]
     Active Substance: ENALAPRIL
     Route: 042
  10. LOVENOX [Concomitant]
     Active Substance: ENOXAPARIN SODIUM
     Route: 058
  11. ALBUTEROL. [Concomitant]
     Active Substance: ALBUTEROL
  12. TRICOR [Concomitant]
     Active Substance: FENOFIBRATE
  13. TOPROL XL [Concomitant]
     Active Substance: METOPROLOL SUCCINATE
  14. ASPIRIN. [Concomitant]
     Active Substance: ASPIRIN
  15. NITROGLYCERINE [Concomitant]
     Active Substance: NITROGLYCERIN
  16. ULTRAM [Concomitant]
     Active Substance: TRAMADOL HYDROCHLORIDE
  17. SIMVASTATIN. [Concomitant]
     Active Substance: SIMVASTATIN
  18. METOPROLOL [Concomitant]
     Active Substance: METOPROLOL
     Route: 042
  19. ZITHROMAX [Concomitant]
     Active Substance: AZITHROMYCIN DIHYDRATE
     Route: 042
  20. LASIX [Concomitant]
     Active Substance: FUROSEMIDE
  21. FUROSEMIDE. [Concomitant]
     Active Substance: FUROSEMIDE
     Route: 042
  22. BABY ASPIRIN [Concomitant]
     Active Substance: ASPIRIN
  23. LOTREL [Concomitant]
     Active Substance: AMLODIPINE BESYLATE\BENAZEPRIL HYDROCHLORIDE
     Indication: BLOOD PRESSURE ABNORMAL
  24. PLAVIX [Suspect]
     Active Substance: CLOPIDOGREL BISULFATE
     Indication: MYOCARDIAL INFARCTION
     Route: 065
     Dates: start: 20030202, end: 20100526
  25. FLOMAX [Concomitant]
     Active Substance: TAMSULOSIN HYDROCHLORIDE
  26. STALEVO [Concomitant]
     Active Substance: CARBIDOPA\ENTACAPONE\LEVODOPA
  27. SINGULAIR [Concomitant]
     Active Substance: MONTELUKAST SODIUM
  28. ALLOPURINOL. [Concomitant]
     Active Substance: ALLOPURINOL
  29. WARFARIN [Concomitant]
     Active Substance: WARFARIN

REACTIONS (3)
  - Haemorrhage [Unknown]
  - Injury [Fatal]
  - Epistaxis [Unknown]

NARRATIVE: CASE EVENT DATE: 20040101
